FAERS Safety Report 5333795-3 (Version None)
Quarter: 2007Q2

REPORT INFORMATION
  Report Type: 
  Country: None (occurrence: None)
  Receive Date: 20070306
  Receipt Date: 20051216
  Transmission Date: 20071010
  Serious: Yes (Death, Hospitalization)
  Sender: FDA-Public Use
  Company Number: A03200504278

PATIENT
  Sex: Male

DRUGS (1)
  1. PLAVIX [Suspect]
     Indication: CEREBROVASCULAR ACCIDENT
     Dosage: ORAL
     Route: 048
     Dates: start: 20020101

REACTIONS (4)
  - CONTUSION [None]
  - HAEMORRHAGIC DIATHESIS [None]
  - POST PROCEDURAL HAEMORRHAGE [None]
  - TRANSIENT ISCHAEMIC ATTACK [None]
